FAERS Safety Report 5242233-0 (Version None)
Quarter: 2007Q1

REPORT INFORMATION
  Report Type: 
  Country: None (occurrence: None)
  Receive Date: 20070215
  Receipt Date: 20070215
  Transmission Date: 20070707
  Serious: Yes (Other)
  Sender: FDA-Public Use
  Company Number: None

PATIENT
  Age: 43 Year
  Sex: Female
  Weight: 79.3795 kg

DRUGS (2)
  1. LEVAQUIN [Suspect]
     Indication: EAR INFECTION
     Dosage: 750 1X DAILY PO
     Route: 048
     Dates: start: 20061229, end: 20070102
  2. LEVAQUIN [Suspect]
     Indication: EAR INFECTION
     Dosage: 500 1XDAILY PO
     Route: 048
     Dates: start: 20070103, end: 20070107

REACTIONS (5)
  - ARTHRALGIA [None]
  - HEADACHE [None]
  - INSOMNIA [None]
  - MIGRAINE [None]
  - OEDEMA PERIPHERAL [None]
